FAERS Safety Report 17219205 (Version 40)
Quarter: 2025Q4

REPORT INFORMATION
  Report Type: Report from Study
  Country: CA (occurrence: CA)
  Receive Date: 20191231
  Receipt Date: 20251106
  Transmission Date: 20260117
  Serious: Yes (Hospitalization, Other)
  Sender: TAKEDA
  Company Number: CA-SHIRE-CA201944362

PATIENT
  Age: 60 Year
  Sex: Female

DRUGS (31)
  1. ICATIBANT [Suspect]
     Active Substance: ICATIBANT ACETATE
     Indication: Hereditary angioedema with C1 esterase inhibitor deficiency
     Dosage: 30 MILLIGRAM
  2. ICATIBANT [Suspect]
     Active Substance: ICATIBANT ACETATE
     Dosage: UNK
  3. ICATIBANT [Suspect]
     Active Substance: ICATIBANT ACETATE
     Dosage: UNK
  4. ICATIBANT [Suspect]
     Active Substance: ICATIBANT ACETATE
     Dosage: UNK
  5. ICATIBANT [Suspect]
     Active Substance: ICATIBANT ACETATE
     Dosage: UNK
  6. ICATIBANT [Suspect]
     Active Substance: ICATIBANT ACETATE
     Dosage: UNK
  7. ICATIBANT [Suspect]
     Active Substance: ICATIBANT ACETATE
     Dosage: 30 MILLIGRAM
  8. ICATIBANT [Suspect]
     Active Substance: ICATIBANT ACETATE
     Dosage: 30 MILLIGRAM
  9. ICATIBANT [Suspect]
     Active Substance: ICATIBANT ACETATE
     Dosage: UNK
  10. ICATIBANT [Suspect]
     Active Substance: ICATIBANT ACETATE
     Dosage: UNK
  11. ICATIBANT [Suspect]
     Active Substance: ICATIBANT ACETATE
     Dosage: UNK
  12. ICATIBANT [Suspect]
     Active Substance: ICATIBANT ACETATE
     Dosage: UNK
  13. ICATIBANT [Suspect]
     Active Substance: ICATIBANT ACETATE
     Dosage: UNK
  14. ICATIBANT [Suspect]
     Active Substance: ICATIBANT ACETATE
     Dosage: UNK
  15. TAKHZYRO [Suspect]
     Active Substance: LANADELUMAB-FLYO
     Indication: Hereditary angioedema with C1 esterase inhibitor deficiency
     Dosage: UNK UNK, Q2WEEKS
     Dates: start: 20240529
  16. TAKHZYRO [Suspect]
     Active Substance: LANADELUMAB-FLYO
     Indication: Prophylaxis
     Dosage: UNK UNK, Q2WEEKS
  17. TAKHZYRO [Suspect]
     Active Substance: LANADELUMAB-FLYO
     Dosage: UNK UNK, Q2WEEKS
  18. TAKHZYRO [Suspect]
     Active Substance: LANADELUMAB-FLYO
     Dosage: 300MG/2ML, Q2WEEKS
  19. TAKHZYRO [Suspect]
     Active Substance: LANADELUMAB-FLYO
     Dosage: 300 MG/2ML, Q2WEEKS
  20. ATIVAN [Concomitant]
     Active Substance: LORAZEPAM
     Dosage: UNK
  21. MORPHINE [Concomitant]
     Active Substance: MORPHINE
     Dosage: UNK
  22. GRAVOL [Concomitant]
     Active Substance: DIMENHYDRINATE
     Dosage: UNK
  23. WARFARIN [Concomitant]
     Active Substance: WARFARIN
     Dosage: UNK
  24. VENLAFAXINE HYDROCHLORIDE [Concomitant]
     Active Substance: VENLAFAXINE HYDROCHLORIDE
     Dosage: UNK
  25. PANTOPRAZOLE MAGNESIUM [Concomitant]
     Active Substance: PANTOPRAZOLE MAGNESIUM
     Dosage: UNK
  26. DIOVAN HCT [Concomitant]
     Active Substance: HYDROCHLOROTHIAZIDE\VALSARTAN
     Dosage: UNK
  27. ADALAT [Concomitant]
     Active Substance: NIFEDIPINE
     Dosage: UNK
  28. CELEXA [Concomitant]
     Active Substance: CITALOPRAM HYDROBROMIDE
     Dosage: UNK
  29. VENLAFAXINE [Concomitant]
     Active Substance: VENLAFAXINE HYDROCHLORIDE
     Dosage: UNK
  30. BERINERT [Concomitant]
     Active Substance: HUMAN C1-ESTERASE INHIBITOR
     Dosage: 1500 UNK
  31. ZOPICLONE [Concomitant]
     Active Substance: ZOPICLONE
     Dosage: UNK

REACTIONS (52)
  - Encephalitis [Unknown]
  - Seizure [Unknown]
  - Speech disorder [Unknown]
  - Suicidal ideation [Unknown]
  - Brain abscess [Unknown]
  - Nasal abscess [Unknown]
  - Post procedural complication [Not Recovered/Not Resolved]
  - Stoma site oedema [Unknown]
  - Post procedural haemorrhage [Unknown]
  - Neoplasm [Unknown]
  - Stoma site discharge [Unknown]
  - Stress [Unknown]
  - General physical health deterioration [Unknown]
  - Cardiac disorder [Unknown]
  - Haemoglobin decreased [Unknown]
  - Pharyngeal swelling [Not Recovered/Not Resolved]
  - Pulmonary thrombosis [Not Recovered/Not Resolved]
  - Kidney infection [Not Recovered/Not Resolved]
  - Cholecystitis infective [Not Recovered/Not Resolved]
  - Intestinal obstruction [Unknown]
  - Hereditary angioedema [Unknown]
  - Product use issue [Not Recovered/Not Resolved]
  - Inappropriate schedule of product administration [Unknown]
  - Fall [Unknown]
  - Rib fracture [Recovered/Resolved]
  - Limb injury [Unknown]
  - Depressed mood [Not Recovered/Not Resolved]
  - Illness [Unknown]
  - Bedridden [Unknown]
  - Frustration tolerance decreased [Not Recovered/Not Resolved]
  - Gait disturbance [Unknown]
  - Migraine [Unknown]
  - Dysania [Unknown]
  - Neurosis [Not Recovered/Not Resolved]
  - Dysphonia [Not Recovered/Not Resolved]
  - Anxiety [Unknown]
  - Gastrointestinal disorder [Unknown]
  - Dyspepsia [Unknown]
  - Malaise [Unknown]
  - Pain [Unknown]
  - Fatigue [Unknown]
  - Joint swelling [Unknown]
  - Peripheral swelling [Unknown]
  - Influenza [Unknown]
  - Product dose omission issue [Unknown]
  - Poor venous access [Unknown]
  - Therapeutic product effect decreased [Unknown]
  - Abdominal pain [Unknown]
  - Device malfunction [Unknown]
  - Headache [Unknown]
  - Dizziness [Unknown]
  - Infection [Unknown]

NARRATIVE: CASE EVENT DATE: 20210601
